FAERS Safety Report 5036861-5 (Version None)
Quarter: 2006Q2

REPORT INFORMATION
  Report Type: 
  Country: None (occurrence: None)
  Receive Date: 20060628
  Receipt Date: 20060621
  Transmission Date: 20061013
  Serious: Yes (Hospitalization)
  Sender: FDA-Public Use
  Company Number: IE-JNJFOC-20060604849

PATIENT
  Sex: Male

DRUGS (12)
  1. DURAGESIC-50 [Suspect]
     Indication: DRUG USE FOR UNKNOWN INDICATION
     Route: 062
  2. TRITACE [Concomitant]
     Route: 065
  3. VASTAREL [Concomitant]
     Route: 065
  4. LASIX [Concomitant]
     Route: 065
  5. NITRO-DUR [Concomitant]
     Route: 065
  6. SOLPADOL [Concomitant]
     Route: 065
  7. LIPITOR [Concomitant]
     Route: 065
  8. DIAMICRON [Concomitant]
     Route: 065
  9. PLAVIX [Concomitant]
     Route: 065
  10. LEXAPRO [Concomitant]
     Route: 065
  11. NEXIUM [Concomitant]
     Route: 065
  12. NU-SEALS [Concomitant]
     Route: 065

REACTIONS (8)
  - ABDOMINAL PAIN [None]
  - CONSTIPATION [None]
  - DIZZINESS [None]
  - HYPOTENSION [None]
  - NAUSEA [None]
  - SYNCOPE [None]
  - VISUAL DISTURBANCE [None]
  - VOMITING [None]
